FAERS Safety Report 9739484 (Version 2)
Quarter: 2014Q1

REPORT INFORMATION
  Report Type: Spontaneous
  Country: JP (occurrence: JP)
  Receive Date: 20131209
  Receipt Date: 20140114
  Transmission Date: 20141002
  Serious: Yes (Death, Hospitalization, Other)
  Sender: FDA-Public Use
  Company Number: JP-CELGENEUS-087-21660-13115924

PATIENT
  Age: 70 Year
  Sex: Male
  Weight: 60 kg

DRUGS (12)
  1. ABRAXANE [Suspect]
     Indication: LUNG SQUAMOUS CELL CARCINOMA STAGE IV
     Dosage: 166 MILLIGRAM
     Route: 041
     Dates: start: 20130711, end: 20131108
  2. CARBOPLATIN [Suspect]
     Indication: LUNG SQUAMOUS CELL CARCINOMA STAGE IV
     Route: 041
     Dates: start: 20130711, end: 20131101
  3. OXYCONTIN [Concomitant]
     Indication: PAIN
     Dosage: 100 MILLIGRAM
     Route: 048
  4. LANTUS [Concomitant]
     Indication: DIABETES MELLITUS
     Route: 058
     Dates: start: 20130621
  5. HUMALOG [Concomitant]
     Indication: DIABETES MELLITUS
     Route: 058
     Dates: start: 20130621
  6. ZOMETA [Concomitant]
     Indication: LUNG SQUAMOUS CELL CARCINOMA STAGE IV
     Dosage: 4 MILLIGRAM
     Route: 041
     Dates: start: 20130705
  7. GRANISETRON HYDROCHLORIDE [Concomitant]
     Indication: PROPHYLAXIS
     Dosage: 3 MILLIGRAM
     Route: 041
     Dates: start: 20130711, end: 20131108
  8. DEXART [Concomitant]
     Indication: PROPHYLAXIS
     Dosage: 13.2 MILLIGRAM
     Route: 041
     Dates: start: 20130711, end: 20131108
  9. DECADRON [Concomitant]
     Indication: PROPHYLAXIS
     Dosage: 8 MILLIGRAM
     Route: 041
     Dates: start: 20130711, end: 20131104
  10. PROEMEND [Concomitant]
     Indication: PROPHYLAXIS
     Dosage: 150 MILLIGRAM
     Route: 041
     Dates: start: 20130809, end: 20131101
  11. ALOXI [Concomitant]
     Indication: PRODUCT USED FOR UNKNOWN INDICATION
     Route: 041
     Dates: start: 20131004, end: 20131101
  12. DIURETIC [Concomitant]
     Indication: OEDEMA PERIPHERAL
     Route: 065

REACTIONS (4)
  - Febrile neutropenia [Fatal]
  - Pneumonia pneumococcal [Fatal]
  - Septic shock [Not Recovered/Not Resolved]
  - Gastric ulcer [Unknown]
